FAERS Safety Report 7618833-7 (Version None)
Quarter: 2011Q3

REPORT INFORMATION
  Report Type: 
  Country: None (occurrence: None)
  Receive Date: 20110718
  Receipt Date: 20110715
  Transmission Date: 20111222
  Serious: Yes (Other)
  Sender: FDA-Public Use
  Company Number: US-PFIZER INC-2011124235

PATIENT
  Sex: Female
  Weight: 48.073 kg

DRUGS (9)
  1. XANAX [Concomitant]
     Dosage: UNK
  2. CHANTIX [Suspect]
     Indication: SMOKING CESSATION THERAPY
     Dosage: 0.5 MG, 1X/DAY
     Route: 048
     Dates: start: 20101001, end: 20101001
  3. NORVASC [Concomitant]
     Dosage: 2 MG, UNK
  4. NORVASC [Concomitant]
     Indication: HYPERTENSION
     Dosage: UNK
  5. TEGRETOL [Concomitant]
     Indication: CONVULSION
     Dosage: UNK
  6. ALBUTEROL SULFATE AUTOHALER [Concomitant]
     Dosage: UNK
  7. CHANTIX [Suspect]
     Dosage: 1 MG, 2X/DAY
     Route: 048
     Dates: start: 20110601, end: 20110701
  8. TEGRETOL [Concomitant]
     Dosage: UNK
  9. SEROQUEL [Concomitant]
     Dosage: UNK

REACTIONS (5)
  - CHRONIC OBSTRUCTIVE PULMONARY DISEASE [None]
  - DRUG WITHDRAWAL SYNDROME [None]
  - DEPRESSION [None]
  - AGGRESSION [None]
  - VISUAL IMPAIRMENT [None]
